FAERS Safety Report 18202900 (Version 3)
Quarter: 2021Q1

REPORT INFORMATION
  Report Type: Spontaneous
  Country: US (occurrence: US)
  Receive Date: 20200827
  Receipt Date: 20210202
  Transmission Date: 20210419
  Serious: Yes (Other)
  Sender: FDA-Public Use
  Company Number: US-GILEAD-2020-0491936

PATIENT
  Sex: Male
  Weight: 97.1 kg

DRUGS (7)
  1. TRUVADA [Suspect]
     Active Substance: EMTRICITABINE\TENOFOVIR DISOPROXIL FUMARATE
     Dosage: UNK
     Route: 048
     Dates: start: 2004, end: 2005
  2. LORAZEPAM. [Concomitant]
     Active Substance: LORAZEPAM
  3. TAMSULOSIN [Concomitant]
     Active Substance: TAMSULOSIN
  4. GENVOYA [Concomitant]
     Active Substance: COBICISTAT\ELVITEGRAVIR\EMTRICITABINE\TENOFOVIR ALAFENAMIDE FUMARATE
     Indication: HIV INFECTION
  5. TRUVADA [Suspect]
     Active Substance: EMTRICITABINE\TENOFOVIR DISOPROXIL FUMARATE
     Indication: HIV INFECTION
     Dosage: UNK
     Route: 048
     Dates: start: 2006
  6. TRUVADA [Suspect]
     Active Substance: EMTRICITABINE\TENOFOVIR DISOPROXIL FUMARATE
     Dosage: UNK
     Route: 048
     Dates: start: 2005, end: 2012
  7. INSULINE [Concomitant]
     Active Substance: INSULIN NOS

REACTIONS (8)
  - Fracture [Recovered/Resolved]
  - Bone density decreased [Unknown]
  - Anhedonia [Unknown]
  - Emotional distress [Unknown]
  - Fracture [Recovered/Resolved]
  - Fracture [Recovered/Resolved]
  - Osteopenia [Not Recovered/Not Resolved]
  - Anxiety [Unknown]

NARRATIVE: CASE EVENT DATE: 2004
